FAERS Safety Report 10375541 (Version 1)
Quarter: 2014Q1

REPORT INFORMATION
  Report Type: Spontaneous
  Country: US (occurrence: None)
  Receive Date: 20140306
  Receipt Date: 20140306
  Transmission Date: 20141002
  Serious: Yes (Other)
  Sender: FDA-Public Use
  Company Number: 163-21880-12121183

PATIENT
  Age: 87 Year
  Sex: Male
  Weight: 77.57 kg

DRUGS (13)
  1. REVLIMID [Suspect]
     Indication: PLASMA CELL MYELOMA
     Dosage: 10MG, 14 IN 28 D, PO
     Route: 048
     Dates: start: 20120726, end: 2012
  2. DECADRON (DEXAMETHASONE) [Concomitant]
  3. ASA (ACETYLSALICYLIC ACID) [Concomitant]
  4. ACYCLOVIR (ACICLOVIR) (ACICLOVIR) [Concomitant]
  5. FINASTERIDE [Concomitant]
  6. SYNTHROID (LEVOTHYROXINE SODIUM) [Concomitant]
  7. ALLOPURINOL [Concomitant]
  8. OMEPRAZOLE [Concomitant]
  9. CALCIUM WITH VITAMIN D [Concomitant]
  10. UROXATRAL (ALFUZOSIN HYDROCHLORIDE) [Concomitant]
  11. LEVAQUIN (LEVOFLOXACIN) [Concomitant]
  12. LASIX (FUROSEMIDE) [Concomitant]
  13. CARDURA (DOXAZOSIN MESILATE) [Concomitant]

REACTIONS (2)
  - Pancytopenia [None]
  - Fatigue [None]
